FAERS Safety Report 14995384 (Version 2)
Quarter: 2018Q3

REPORT INFORMATION
  Report Type: Spontaneous
  Country: US (occurrence: US)
  Receive Date: 20180611
  Receipt Date: 20180716
  Transmission Date: 20181010
  Serious: No
  Sender: FDA-Public Use
  Company Number: US-SA-2018SA138582

PATIENT
  Age: 70 Year
  Sex: Female
  Weight: 143 kg

DRUGS (4)
  1. PENICILLIN NOS [Concomitant]
     Active Substance: PENICILLIN
  2. TRAMATOL [Concomitant]
  3. ZANTAC [Suspect]
     Active Substance: RANITIDINE HYDROCHLORIDE
     Indication: DYSPEPSIA
     Dosage: UNK
     Dates: start: 201401, end: 201805
  4. CODEIN [Concomitant]
     Active Substance: CODEINE

REACTIONS (2)
  - Dyspepsia [Unknown]
  - Drug ineffective [Unknown]
